FAERS Safety Report 7032759-1 (Version None)
Quarter: 2010Q4

REPORT INFORMATION
  Report Type: 
  Country: None (occurrence: None)
  Receive Date: 20101007
  Receipt Date: 20101004
  Transmission Date: 20110411
  Serious: No
  Sender: FDA-Public Use
  Company Number: US-PFIZER INC-2010126278

PATIENT
  Sex: Female
  Weight: 53.968 kg

DRUGS (2)
  1. SYNAREL [Suspect]
     Indication: ENDOMETRIOSIS
     Dosage: 2 MG, 2 PUFFS 2X/DAY
     Dates: start: 20100902
  2. SYNAREL [Suspect]
     Indication: OVARIAN CYST

REACTIONS (2)
  - ABDOMINAL PAIN [None]
  - BACK PAIN [None]
